FAERS Safety Report 10035877 (Version 2)
Quarter: 2014Q3

REPORT INFORMATION
  Report Type: Report from Study
  Country: DK (occurrence: AT)
  Receive Date: 20140325
  Receipt Date: 20140820
  Transmission Date: 20150326
  Serious: Yes (Other)
  Sender: FDA-Public Use
  Company Number: AT-FRI-1000060279

PATIENT
  Sex: Female
  Weight: 80.8 kg

DRUGS (33)
  1. ESCITALOPRAM [Suspect]
     Active Substance: ESCITALOPRAM OXALATE
     Dosage: 10 MG
     Dates: start: 20131031, end: 20131120
  2. RIVOTRIL [Concomitant]
     Active Substance: CLONAZEPAM
     Dosage: 2.5 MG
     Dates: start: 20131216
  3. ESCITALOPRAM [Suspect]
     Active Substance: ESCITALOPRAM OXALATE
     Dosage: 20 MG
     Dates: start: 20131121, end: 20131201
  4. VALDOXAN [Suspect]
     Active Substance: AGOMELATINE
     Dosage: 25 MG
     Dates: start: 20131130, end: 20131201
  5. TRITTICO [Suspect]
     Active Substance: TRAZODONE HYDROCHLORIDE
     Dosage: 100 MG
     Dates: start: 20131123, end: 20131124
  6. RIVOTRIL [Concomitant]
     Active Substance: CLONAZEPAM
     Dosage: 1.75 MG
     Dates: start: 20131121, end: 20131128
  7. SIRDALUD [Concomitant]
     Active Substance: TIZANIDINE
     Dosage: 2 MG
     Dates: start: 20131122, end: 20131208
  8. TOLVON [Concomitant]
     Active Substance: MIANSERIN
     Dosage: 30 MG
     Dates: start: 20131210, end: 20131212
  9. TOLVON [Concomitant]
     Active Substance: MIANSERIN
     Dosage: 60 MG
     Dates: start: 20131213
  10. SEROQUEL [Suspect]
     Active Substance: QUETIAPINE FUMARATE
     Dosage: 200 MG
     Dates: start: 20131130, end: 20131203
  11. SEROQUEL [Suspect]
     Active Substance: QUETIAPINE FUMARATE
     Dosage: 300 MG
     Dates: start: 20131205, end: 20131208
  12. RIVOTRIL [Concomitant]
     Active Substance: CLONAZEPAM
     Dosage: 2.75 MG
     Dates: start: 20131202, end: 20131215
  13. ESCITALOPRAM [Suspect]
     Active Substance: ESCITALOPRAM OXALATE
     Dosage: 10 MG
     Dates: start: 20131202, end: 20131202
  14. TRITTICO [Suspect]
     Active Substance: TRAZODONE HYDROCHLORIDE
     Dosage: 150 MG
     Dates: start: 20131125, end: 20131208
  15. RIVOTRIL [Concomitant]
     Active Substance: CLONAZEPAM
     Dosage: 0.5 MG
     Dates: start: 20131031, end: 20131119
  16. SEROQUEL [Suspect]
     Active Substance: QUETIAPINE FUMARATE
     Dosage: 100 MG
     Dates: start: 20131128, end: 20131128
  17. SEROQUEL [Suspect]
     Active Substance: QUETIAPINE FUMARATE
     Dosage: 150 MG
     Dates: start: 20131129, end: 20131129
  18. CYMBALTA [Suspect]
     Active Substance: DULOXETINE HYDROCHLORIDE
     Dosage: 30 MG
     Dates: start: 20131202, end: 20131202
  19. THROMBOASS [Concomitant]
     Active Substance: ASPIRIN
     Dosage: 100 MG
  20. VALDOXAN [Suspect]
     Active Substance: AGOMELATINE
     Dosage: 25 MG
     Dates: start: 20131120, end: 20131124
  21. VALDOXAN [Suspect]
     Active Substance: AGOMELATINE
     Dosage: 50 MG
     Dates: start: 20131125, end: 20131129
  22. LYRICA [Suspect]
     Active Substance: PREGABALIN
     Dosage: 150 MG
     Dates: start: 20131031, end: 20131124
  23. SEROQUEL [Suspect]
     Active Substance: QUETIAPINE FUMARATE
     Dosage: 200 MG
     Dates: start: 20131204, end: 20131204
  24. CYMBALTA [Suspect]
     Active Substance: DULOXETINE HYDROCHLORIDE
     Dosage: 60 MG
     Dates: start: 20131203, end: 20131205
  25. CYMBALTA [Suspect]
     Active Substance: DULOXETINE HYDROCHLORIDE
     Dosage: 120 MG
     Dates: start: 20131206
  26. ASPIRIN. [Concomitant]
     Active Substance: ASPIRIN
     Dosage: 80 MG
     Dates: start: 20131126, end: 20131126
  27. TOLVON [Concomitant]
     Active Substance: MIANSERIN
     Dosage: 60 MG
     Dates: start: 20131209, end: 20131209
  28. ASPIRIN. [Concomitant]
     Active Substance: ASPIRIN
     Dosage: 40 MG
     Dates: start: 20131127, end: 20131127
  29. RIVOTRIL [Concomitant]
     Active Substance: CLONAZEPAM
     Dosage: 1 MG
     Dates: start: 20131120, end: 20131120
  30. SEROQUEL [Suspect]
     Active Substance: QUETIAPINE FUMARATE
     Dosage: 400 MG
     Dates: start: 20131209
  31. ZOLDEM [Concomitant]
     Active Substance: ZOLPIDEM TARTRATE
     Dosage: 10 MG
     Dates: start: 20131127, end: 20131127
  32. ZOLDEM [Concomitant]
     Active Substance: ZOLPIDEM TARTRATE
     Dosage: 10 MG
     Dates: start: 20131211
  33. RIVOTRIL [Concomitant]
     Active Substance: CLONAZEPAM
     Dosage: 1.25 MG
     Dates: start: 20131129, end: 20131201

REACTIONS (3)
  - Dizziness [Recovered/Resolved]
  - Accommodation disorder [Recovered/Resolved]
  - Dry mouth [Recovered/Resolved]

NARRATIVE: CASE EVENT DATE: 20131120
